FAERS Safety Report 7864388-1 (Version None)
Quarter: 2011Q4

REPORT INFORMATION
  Report Type: 
  Country: None (occurrence: None)
  Receive Date: 20111028
  Receipt Date: 20111019
  Transmission Date: 20120403
  Serious: Yes (Hospitalization)
  Sender: FDA-Public Use
  Company Number: US-CELGENEUS-163-21660-11102597

PATIENT
  Age: 51 Year
  Sex: Female
  Weight: 63.18 kg

DRUGS (4)
  1. ABRAXANE [Suspect]
     Dosage: 150 MILLIGRAM/SQ. METER
     Route: 041
     Dates: start: 20100101, end: 20100421
  2. BEVACIZUMAB [Suspect]
     Indication: BREAST CANCER
     Dosage: 10 MILLIGRAM/KILOGRAM
     Route: 041
     Dates: start: 20100211, end: 20100101
  3. BEVACIZUMAB [Suspect]
     Dosage: 10 MILLIGRAM/KILOGRAM
     Route: 041
     Dates: start: 20100101, end: 20100421
  4. ABRAXANE [Suspect]
     Indication: BREAST CANCER
     Dosage: 150 MILLIGRAM/SQ. METER
     Route: 041
     Dates: start: 20100211, end: 20100101

REACTIONS (10)
  - DECREASED APPETITE [None]
  - HYPONATRAEMIA [None]
  - DYSPNOEA [None]
  - PNEUMONITIS [None]
  - ACUTE RESPIRATORY DISTRESS SYNDROME [None]
  - COGNITIVE DISORDER [None]
  - SEPSIS [None]
  - FATIGUE [None]
  - CONFUSIONAL STATE [None]
  - MUSCULAR WEAKNESS [None]
